FAERS Safety Report 10045257 (Version 1)
Quarter: 2014Q1

REPORT INFORMATION
  Report Type: Spontaneous
  Country: US (occurrence: US)
  Receive Date: 20140328
  Receipt Date: 20140328
  Transmission Date: 20141002
  Serious: Yes (Hospitalization)
  Sender: FDA-Public Use
  Company Number: US-BAYER-2014-041943

PATIENT
  Age: 62 Year
  Sex: Female

DRUGS (3)
  1. ADEMPAS [Suspect]
     Indication: PRODUCT USED FOR UNKNOWN INDICATION
     Dosage: UNKNOWN
  2. EPOPROSTENOL [Suspect]
     Indication: COR PULMONALE CHRONIC
     Dosage: 19 NG/ KG PER MIN
     Route: 042
     Dates: start: 20131021
  3. COUMADIN [Concomitant]

REACTIONS (1)
  - Fluid retention [None]
